FAERS Safety Report 5484263-X (Version None)
Quarter: 2007Q4

REPORT INFORMATION
  Report Type: 
  Country: None (occurrence: None)
  Receive Date: 20071012
  Receipt Date: 20071009
  Transmission Date: 20080405
  Serious: Yes (Other)
  Sender: FDA-Public Use
  Company Number: US-ROXANE LABORATORIES, INC-2007-BP-22446RO

PATIENT
  Age: 32 Year
  Sex: Male

DRUGS (1)
  1. TAMOXIFEN CITRATE [Suspect]
     Indication: ASTROCYTOMA

REACTIONS (4)
  - MACULAR OEDEMA [None]
  - MACULOPATHY [None]
  - RETINOPATHY [None]
  - VISUAL ACUITY REDUCED [None]
